FAERS Safety Report 18778583 (Version 1)
Quarter: 2021Q1

REPORT INFORMATION
  Report Type: Spontaneous
  Country: US (occurrence: US)
  Receive Date: 20210123
  Receipt Date: 20210123
  Transmission Date: 20210419
  Serious: No
  Sender: FDA-Public Use
  Company Number: US-009507513-2101USA008156

PATIENT
  Age: 13 Year
  Sex: Male

DRUGS (10)
  1. SINGULAIR [Suspect]
     Active Substance: MONTELUKAST SODIUM
     Indication: GRANULOMA
  2. PROVENTIL [Suspect]
     Active Substance: ALBUTEROL
     Indication: EOSINOPHILIA
     Dosage: UNK, PRN
  3. BUDESONIDE (+) FORMOTEROL FUMARATE [Concomitant]
     Active Substance: BUDESONIDE\FORMOTEROL FUMARATE
     Indication: EOSINOPHILIA
     Dosage: 2 PUFFS TWICE DAILY
  4. PREDNISONE. [Concomitant]
     Active Substance: PREDNISONE
     Indication: EOSINOPHILIA
     Dosage: 2 MILLIGRAM/KILOGRAM, QD
  5. SINGULAIR [Suspect]
     Active Substance: MONTELUKAST SODIUM
     Indication: EOSINOPHILIA
     Dosage: DAILY
  6. BUDESONIDE (+) FORMOTEROL FUMARATE [Concomitant]
     Active Substance: BUDESONIDE\FORMOTEROL FUMARATE
     Indication: GRANULOMA
  7. DULERA [Suspect]
     Active Substance: FORMOTEROL FUMARATE DIHYDRATE\MOMETASONE FUROATE
     Indication: EOSINOPHILIA
     Dosage: 2 PUFFS TWICE DAILY
  8. DULERA [Suspect]
     Active Substance: FORMOTEROL FUMARATE DIHYDRATE\MOMETASONE FUROATE
     Indication: GRANULOMA
  9. PROVENTIL [Suspect]
     Active Substance: ALBUTEROL
     Indication: GRANULOMA
  10. PREDNISONE. [Concomitant]
     Active Substance: PREDNISONE
     Indication: GRANULOMA

REACTIONS (1)
  - Product use in unapproved indication [Unknown]
